FAERS Safety Report 24684451 (Version 1)
Quarter: 2024Q4

REPORT INFORMATION
  Report Type: Report from Study
  Country: US (occurrence: US)
  Receive Date: 20241202
  Receipt Date: 20241202
  Transmission Date: 20250114
  Serious: Yes (Hospitalization, Other)
  Sender: TAKEDA
  Company Number: US-ARIAD-2014US003129

PATIENT
  Sex: Female

DRUGS (2)
  1. PONATINIB [Suspect]
     Active Substance: PONATINIB
     Indication: Chronic myeloid leukaemia
     Dosage: 15 MILLIGRAM, QD
     Dates: start: 20140206
  2. PONATINIB [Suspect]
     Active Substance: PONATINIB
     Indication: Iron deficiency anaemia
     Dosage: 10 MILLIGRAM, QD
     Dates: start: 20190610

REACTIONS (13)
  - Hypoaesthesia [Recovered/Resolved]
  - Paraesthesia [Recovered/Resolved]
  - Dizziness postural [Unknown]
  - Asthenia [Unknown]
  - Pyrexia [Unknown]
  - Pancreatitis [Unknown]
  - Blood pressure orthostatic abnormal [Unknown]
  - Blood pressure abnormal [Unknown]
  - Folliculitis [Unknown]
  - Rash [Unknown]
  - Blood uric acid increased [Unknown]
  - Arthralgia [Not Recovered/Not Resolved]
  - Product prescribing error [Unknown]

NARRATIVE: CASE EVENT DATE: 20140101
